FAERS Safety Report 24940835 (Version 1)
Quarter: 2025Q1

REPORT INFORMATION
  Report Type: Spontaneous
  Country: AT (occurrence: AT)
  Receive Date: 20250207
  Receipt Date: 20250207
  Transmission Date: 20250409
  Serious: Yes (Hospitalization, Other)
  Sender: AMGEN
  Company Number: AT-AMGEN-AUTSP2025019231

PATIENT
  Age: 39 Year
  Sex: Female

DRUGS (2)
  1. NPLATE [Suspect]
     Active Substance: ROMIPLOSTIM
     Indication: Immune thrombocytopenia
     Dosage: 7 MICROGRAM/KILOGRAM, QWK
     Route: 065
     Dates: start: 202208
  2. NPLATE [Suspect]
     Active Substance: ROMIPLOSTIM
     Dosage: 7 MICROGRAM/KILOGRAM, Q2WK
     Route: 065

REACTIONS (4)
  - Waldenstrom^s macroglobulinaemia [Unknown]
  - Immune thrombocytopenia [Unknown]
  - Therapeutic product effect decreased [Unknown]
  - Respiratory tract infection [Unknown]

NARRATIVE: CASE EVENT DATE: 20241001
